FAERS Safety Report 17817149 (Version 1)
Quarter: 2020Q2

REPORT INFORMATION
  Report Type: Spontaneous
  Country: MA (occurrence: MA)
  Receive Date: 20200522
  Receipt Date: 20200522
  Transmission Date: 20200714
  Serious: Yes (Death)
  Sender: FDA-Public Use
  Company Number: MA-ACTELION-A-CH2020-205463

PATIENT
  Age: 17 Year
  Sex: Female

DRUGS (1)
  1. OPSUMIT [Suspect]
     Active Substance: MACITENTAN
     Indication: PULMONARY ARTERIAL HYPERTENSION
     Dosage: 10 MG, QD
     Route: 048

REACTIONS (8)
  - Cardiogenic shock [Fatal]
  - Palpitations [Fatal]
  - Acute coronary syndrome [Fatal]
  - Electrocardiogram ST segment elevation [Fatal]
  - Chest pain [Fatal]
  - Troponin increased [Fatal]
  - Arteritis coronary [Fatal]
  - Myocarditis [Fatal]
